FAERS Safety Report 9535940 (Version 2)
Quarter: 2013Q3

REPORT INFORMATION
  Report Type: Spontaneous
  Country: US (occurrence: None)
  Receive Date: 20130506
  Receipt Date: 20130801
  Transmission Date: 20140515
  Serious: Yes (Other)
  Sender: FDA-Public Use
  Company Number: 2013SCPR005816

PATIENT
  Sex: Female

DRUGS (1)
  1. LAMOTRIGINE [Suspect]
     Indication: CONVULSION
     Dosage: UNK, UNKNOWN, UNKNOWN

REACTIONS (3)
  - Convulsion [None]
  - Drug ineffective [None]
  - Product quality issue [None]
